FAERS Safety Report 12325324 (Version 1)
Quarter: 2016Q2

REPORT INFORMATION
  Report Type: Spontaneous
  Country: US (occurrence: US)
  Receive Date: 20160502
  Receipt Date: 20160502
  Transmission Date: 20160815
  Serious: No
  Sender: FDA-Public Use
  Company Number: US-ELI_LILLY_AND_COMPANY-US201604003367

PATIENT
  Age: 64 Year
  Sex: Female

DRUGS (3)
  1. HUMALOG [Suspect]
     Active Substance: INSULIN LISPRO
     Dosage: 1 UNIT PER EVERY 5 OVER 130 ON A SLIDING SCALE
     Route: 065
     Dates: start: 20160401
  2. LANTUS [Concomitant]
     Active Substance: INSULIN GLARGINE
     Indication: PRODUCT USED FOR UNKNOWN INDICATION
     Dosage: 120 U, EACH MORNING
     Route: 065
  3. HUMALOG [Suspect]
     Active Substance: INSULIN LISPRO
     Indication: TYPE 1 DIABETES MELLITUS
     Dosage: 75 U, AT MEALS
     Route: 065
     Dates: start: 20160401

REACTIONS (5)
  - Blood glucose increased [Not Recovered/Not Resolved]
  - Blood glucose decreased [Unknown]
  - Blood glucose increased [Not Recovered/Not Resolved]
  - Blood glucose increased [Not Recovered/Not Resolved]
  - Asthenia [Unknown]

NARRATIVE: CASE EVENT DATE: 20160403
